FAERS Safety Report 4864232-0 (Version None)
Quarter: 2005Q4

REPORT INFORMATION
  Report Type: 
  Country: None (occurrence: None)
  Receive Date: 20051220
  Receipt Date: 20051220
  Transmission Date: 20060501
  Serious: Yes (Hospitalization, Other)
  Sender: FDA-Public Use
  Company Number: None

PATIENT
  Sex: Female
  Weight: 97.6 kg

DRUGS (2)
  1. CASPOFUNGIN [Suspect]
     Indication: FUNGAEMIA
     Dosage: 70 MG ONCE IV
     Route: 042
     Dates: start: 20051211, end: 20051211
  2. CASPOFUNGIN [Suspect]
     Indication: FUNGAEMIA
     Dosage: 50 MG DAILY IV
     Route: 042
     Dates: start: 20051212, end: 20051215

REACTIONS (1)
  - RENAL FAILURE [None]
